FAERS Safety Report 9786630 (Version 1)
Quarter: 2013Q4

REPORT INFORMATION
  Report Type: Report from Study
  Country: US (occurrence: US)
  Receive Date: 20131227
  Receipt Date: 20131227
  Transmission Date: 20140711
  Serious: Yes (Hospitalization)
  Sender: FDA-Public Use
  Company Number: US-ABBVIE-13P-163-1181226-00

PATIENT
  Age: 63 Year
  Sex: Female
  Weight: 83.99 kg

DRUGS (4)
  1. HUMIRA [Suspect]
     Indication: SYSTEMIC LUPUS ERYTHEMATOSUS
     Dates: start: 201302, end: 20131128
  2. HUMIRA [Suspect]
     Indication: RHEUMATOID ARTHRITIS
  3. METHOTREXATE [Concomitant]
     Indication: RHEUMATOID ARTHRITIS
  4. TYLENOL [Concomitant]
     Indication: PAIN

REACTIONS (4)
  - Joint dislocation [Recovered/Resolved]
  - Fall [Not Recovered/Not Resolved]
  - Wrist fracture [Recovered/Resolved]
  - Arthralgia [Not Recovered/Not Resolved]
